FAERS Safety Report 7001054-9 (Version None)
Quarter: 2010Q3

REPORT INFORMATION
  Report Type: 
  Country: None (occurrence: None)
  Receive Date: 20100920
  Receipt Date: 20100616
  Transmission Date: 20110219
  Serious: No
  Sender: FDA-Public Use
  Company Number: US-ASTRAZENECA-2010SE29256

PATIENT
  Sex: Male

DRUGS (4)
  1. SEROQUEL [Suspect]
     Indication: PSYCHOTIC DISORDER
     Dosage: 100-800 MG
     Route: 048
     Dates: start: 20010606
  2. SERTRALINE HYDROCHLORIDE [Concomitant]
     Indication: DEPRESSION
     Dosage: 100-200 MG
     Route: 048
     Dates: start: 20010606
  3. LOVASTATIN [Concomitant]
     Route: 048
     Dates: start: 20010731
  4. CHLORPHENIRAMINE MALEATE [Concomitant]
     Route: 048
     Dates: start: 20010731

REACTIONS (3)
  - DIABETES MELLITUS [None]
  - GASTROINTESTINAL DISORDER [None]
  - OBESITY [None]
